FAERS Safety Report 5064401-3 (Version None)
Quarter: 2006Q3

REPORT INFORMATION
  Report Type: 
  Country: None (occurrence: None)
  Receive Date: 20060728
  Receipt Date: 20060710
  Transmission Date: 20061208
  Serious: Yes (Hospitalization, Other)
  Sender: FDA-Public Use
  Company Number: US-BRISTOL-MYERS SQUIBB COMPANY-13437918

PATIENT
  Age: 66 Year
  Sex: Male
  Weight: 63 kg

DRUGS (5)
  1. ERBITUX [Suspect]
     Indication: METASTATIC CARCINOMA OF THE BLADDER
     Route: 042
     Dates: start: 20060705, end: 20060705
  2. TARCEVA [Suspect]
     Indication: METASTATIC CARCINOMA OF THE BLADDER
     Route: 048
     Dates: start: 20060627, end: 20060705
  3. ASPIRIN [Concomitant]
     Dates: start: 20060426
  4. NAPROXEN [Concomitant]
     Dates: start: 20060601
  5. LEVAQUIN [Concomitant]
     Dates: start: 20060701

REACTIONS (2)
  - DEHYDRATION [None]
  - HYPERCALCAEMIA [None]
